FAERS Safety Report 7809218-9 (Version None)
Quarter: 2011Q4

REPORT INFORMATION
  Report Type: 
  Country: None (occurrence: None)
  Receive Date: 20111012
  Receipt Date: 20111003
  Transmission Date: 20120403
  Serious: Yes (Other)
  Sender: FDA-Public Use
  Company Number: US-CELGENEUS-163-21880-11043262

PATIENT
  Sex: Male

DRUGS (7)
  1. VITAMIN D [Concomitant]
     Route: 065
  2. ASPIRIN [Concomitant]
     Route: 065
  3. REVLIMID [Suspect]
     Indication: MULTIPLE MYELOMA
     Dosage: 25 MILLIGRAM
     Route: 048
     Dates: start: 20110303
  4. LOSARTAN POTASSIUM [Concomitant]
     Route: 065
  5. SIMVASTATIN [Concomitant]
     Route: 065
  6. DEXAMETHASONE [Concomitant]
     Route: 065
  7. BYSTOLIC [Concomitant]
     Route: 065

REACTIONS (1)
  - BLADDER CANCER [None]
